FAERS Safety Report 8429825-2 (Version None)
Quarter: 2012Q2

REPORT INFORMATION
  Report Type: 
  Country: None (occurrence: None)
  Receive Date: 20120612
  Receipt Date: 20120605
  Transmission Date: 20120825
  Serious: Yes (Other)
  Sender: FDA-Public Use
  Company Number: CN-GENZYME-THYM-1003267

PATIENT
  Age: 20 Year
  Sex: Male
  Weight: 65 kg

DRUGS (2)
  1. CYCLOSPORINE [Concomitant]
     Indication: APLASTIC ANAEMIA
     Dosage: UNK
     Route: 065
     Dates: start: 20120501, end: 20120501
  2. THYMOGLOBULIN [Suspect]
     Indication: APLASTIC ANAEMIA
     Dosage: 200 MG, QD
     Route: 042
     Dates: start: 20120525, end: 20120529

REACTIONS (3)
  - PLATELET COUNT DECREASED [None]
  - SERUM SICKNESS [None]
  - BONE MARROW FAILURE [None]
